FAERS Safety Report 22304881 (Version 1)
Quarter: 2023Q2

REPORT INFORMATION
  Report Type: Spontaneous
  Country: US (occurrence: None)
  Receive Date: 20230509
  Receipt Date: 20230509
  Transmission Date: 20230722
  Serious: Yes (Hospitalization)
  Sender: FDA-Public Use
  Company Number: None

PATIENT
  Age: 77 Year
  Sex: Male
  Weight: 86.1 kg

DRUGS (7)
  1. RAMUCIRUMAB [Suspect]
     Active Substance: RAMUCIRUMAB
     Indication: Lung neoplasm malignant
     Dates: start: 20230320, end: 20230320
  2. OSIMERTINIB [Concomitant]
     Active Substance: OSIMERTINIB
  3. IPRATROPIUM BROMIDE [Concomitant]
     Active Substance: IPRATROPIUM BROMIDE\IPRATROPIUM BROMIDE ANHYDROUS
  4. HEPARIN [Concomitant]
     Active Substance: HEPARIN SODIUM
  5. NIFEDIPINE [Concomitant]
     Active Substance: NIFEDIPINE
  6. Metoproolol [Concomitant]
  7. CLOPIDOGREL [Concomitant]
     Active Substance: CLOPIDOGREL BISULFATE

REACTIONS (13)
  - Iliac artery rupture [None]
  - Embolism arterial [None]
  - Back pain [None]
  - Abdominal pain lower [None]
  - Syncope [None]
  - Aortic aneurysm repair [None]
  - Chronic obstructive pulmonary disease [None]
  - Acute kidney injury [None]
  - Delirium [None]
  - Asthenia [None]
  - Exercise tolerance decreased [None]
  - Peripheral endarterectomy [None]
  - Mobility decreased [None]

NARRATIVE: CASE EVENT DATE: 20230404
